FAERS Safety Report 10278262 (Version 1)
Quarter: 2014Q3

REPORT INFORMATION
  Report Type: Spontaneous
  Country: US (occurrence: US)
  Receive Date: 20140704
  Receipt Date: 20140704
  Transmission Date: 20150326
  Serious: No
  Sender: FDA-Public Use
  Company Number: US-PFIZER INC-2014182745

PATIENT
  Age: 71 Year
  Sex: Female
  Weight: 72.56 kg

DRUGS (1)
  1. TOVIAZ [Suspect]
     Active Substance: FESOTERODINE FUMARATE
     Indication: INCONTINENCE
     Dosage: 8 MG, AS NEEDED
     Dates: start: 2013

REACTIONS (2)
  - Alcohol interaction [Unknown]
  - Drug ineffective [Unknown]
